FAERS Safety Report 7305618-4 (Version None)
Quarter: 2011Q1

REPORT INFORMATION
  Report Type: 
  Country: None (occurrence: None)
  Receive Date: 20110209
  Receipt Date: 20110124
  Transmission Date: 20110831
  Serious: Yes (Hospitalization, Other)
  Sender: FDA-Public Use
  Company Number: 2011SA005748

PATIENT
  Age: 82 Year
  Sex: Female

DRUGS (5)
  1. LASIX [Concomitant]
  2. VERAPAMIL - SLOW RELEASE [Concomitant]
  3. LOPRESSOR [Concomitant]
  4. MULTAQ [Suspect]
     Indication: ATRIAL FIBRILLATION
     Dosage: 400 MILLIGRAM(S); TWICE A DAY; ORAL
     Route: 048
     Dates: start: 20101202, end: 20110101
  5. PREV MEDS [Concomitant]

REACTIONS (3)
  - ALANINE AMINOTRANSFERASE INCREASED [None]
  - ATRIAL FIBRILLATION [None]
  - ASPARTATE AMINOTRANSFERASE INCREASED [None]
